FAERS Safety Report 22187169 (Version 1)
Quarter: 2023Q2

REPORT INFORMATION
  Report Type: Spontaneous
  Country: CN (occurrence: CN)
  Receive Date: 20230407
  Receipt Date: 20230407
  Transmission Date: 20230721
  Serious: Yes (Other)
  Sender: FDA-Public Use
  Company Number: CN-PFIZER INC-PV202300063514

PATIENT
  Age: 27 Year
  Sex: Female
  Weight: 55 kg

DRUGS (2)
  1. METHOTREXATE SODIUM [Suspect]
     Active Substance: METHOTREXATE SODIUM
     Indication: Ectopic pregnancy
     Dosage: 50 MG, ALTERNATE DAY (ONCE EVERY OTHER DAY)
     Route: 030
     Dates: start: 20230323, end: 20230325
  2. SODIUM CHLORIDE [Concomitant]
     Active Substance: SODIUM CHLORIDE
     Indication: Vehicle solution use
     Dosage: 20 ML, ALTERNATE DAY (ONCE EVERY OTHER DAY)
     Route: 030
     Dates: start: 20230323, end: 20230325

REACTIONS (8)
  - Gastrointestinal disorder [Recovered/Resolved]
  - Nausea [Recovered/Resolved]
  - Vomiting [Recovered/Resolved]
  - Decreased appetite [Recovered/Resolved]
  - Fatigue [Recovered/Resolved]
  - Dizziness [Recovered/Resolved]
  - Mental disorder [Recovered/Resolved]
  - Off label use [Unknown]

NARRATIVE: CASE EVENT DATE: 20230323
